FAERS Safety Report 7862780-2 (Version None)
Quarter: 2011Q4

REPORT INFORMATION
  Report Type: 
  Country: None (occurrence: None)
  Receive Date: 20111027
  Receipt Date: 20101112
  Transmission Date: 20120403
  Serious: No
  Sender: FDA-Public Use
  Company Number: US-AMGEN-TCS422966

PATIENT
  Age: 35 Year
  Sex: Female

DRUGS (2)
  1. LEFLUNOMIDE [Concomitant]
     Dosage: 20 MG, QD
  2. ENBREL [Suspect]
     Indication: RHEUMATOID ARTHRITIS
     Dosage: 50 MG, QWK
     Route: 058
     Dates: start: 20090528

REACTIONS (2)
  - HEPATIC ENZYME INCREASED [None]
  - INJECTION SITE PAIN [None]
